FAERS Safety Report 24072740 (Version 1)
Quarter: 2024Q3

REPORT INFORMATION
  Report Type: Spontaneous
  Country: US (occurrence: None)
  Receive Date: 20240710
  Receipt Date: 20240710
  Transmission Date: 20241017
  Serious: Yes (Life-Threatening, Hospitalization, Disabling, Other)
  Sender: Public
  Company Number: None

PATIENT
  Age: 59 Year
  Sex: Male
  Weight: 72 kg

DRUGS (1)
  1. ENBREL [Suspect]
     Active Substance: BENZYL ALCOHOL\ETANERCEPT
     Indication: Rheumatoid arthritis

REACTIONS (8)
  - Capnocytophaga sepsis [None]
  - Finger amputation [None]
  - Toe amputation [None]
  - Renal failure [None]
  - Cardiac arrest [None]
  - Opportunistic infection [None]
  - Septic shock [None]
  - Near death experience [None]

NARRATIVE: CASE EVENT DATE: 20210719
